FAERS Safety Report 8317564-8 (Version None)
Quarter: 2012Q2

REPORT INFORMATION
  Report Type: 
  Country: None (occurrence: None)
  Receive Date: 20120427
  Receipt Date: 20120419
  Transmission Date: 20120825
  Serious: Yes (Other)
  Sender: FDA-Public Use
  Company Number: US-BAYER-2012-039125

PATIENT
  Age: 31 Year
  Sex: Female

DRUGS (4)
  1. NATAZIA [Suspect]
     Indication: MENSTRUAL CYCLE MANAGEMENT
     Dosage: UNK
     Dates: start: 20120331
  2. CONJUGATED LINOLEIC ACID [Concomitant]
  3. PECTIN [Concomitant]
  4. BIOTIN [Concomitant]

REACTIONS (2)
  - VAGINAL HAEMORRHAGE [None]
  - MENSTRUAL DISORDER [None]
